FAERS Safety Report 18068612 (Version 2)
Quarter: 2020Q4

REPORT INFORMATION
  Report Type: Spontaneous
  Country: NO (occurrence: NO)
  Receive Date: 20200724
  Receipt Date: 20201001
  Transmission Date: 20210113
  Serious: Yes (Other)
  Sender: FDA-Public Use
  Company Number: NO-GE HEALTHCARE LIFE SCIENCES-2020CSU003059

PATIENT

DRUGS (4)
  1. OMNIPAQUE [Suspect]
     Active Substance: IOHEXOL
     Indication: NAUSEA
  2. OMNIPAQUE [Suspect]
     Active Substance: IOHEXOL
     Indication: DYSPHAGIA
  3. AERIUS [Concomitant]
     Indication: HYPERSENSITIVITY
     Dosage: 5 MG
     Route: 048
     Dates: start: 20130101
  4. OMNIPAQUE [Suspect]
     Active Substance: IOHEXOL
     Indication: X-RAY GASTROINTESTINAL TRACT
     Dosage: 150 ML, SINGLE
     Route: 048
     Dates: start: 20200706, end: 20200706

REACTIONS (7)
  - Dizziness [Unknown]
  - Fatigue [Unknown]
  - Dyspnoea [Recovered/Resolved]
  - Diarrhoea [Recovered/Resolved]
  - Nausea [Recovered/Resolved]
  - Urticaria [Recovered/Resolved]
  - Abdominal pain [Recovered/Resolved]

NARRATIVE: CASE EVENT DATE: 202007
